FAERS Safety Report 13387412 (Version 1)
Quarter: 2017Q1

REPORT INFORMATION
  Report Type: Spontaneous
  Country: US (occurrence: US)
  Receive Date: 20170330
  Receipt Date: 20170330
  Transmission Date: 20170429
  Serious: No
  Sender: FDA-Public Use
  Company Number: US-MYLANLABS-2016M1004978

PATIENT
  Age: 40 Year
  Sex: Female

DRUGS (2)
  1. ESTRADIOL TRANSDERMAL SYSTEM [Suspect]
     Active Substance: ESTRADIOL
     Dosage: 0.05 MG/ QD, CHANGES QWK
     Route: 062
     Dates: start: 20150323
  2. MERCAPTOPURINE TABLETS, USP [Concomitant]
     Active Substance: MERCAPTOPURINE
     Dosage: 50 MG, QD
     Route: 048
     Dates: start: 201511

REACTIONS (3)
  - Application site scar [Not Recovered/Not Resolved]
  - Skin burning sensation [Not Recovered/Not Resolved]
  - Application site burn [Not Recovered/Not Resolved]

NARRATIVE: CASE EVENT DATE: 20160117
